FAERS Safety Report 4924501-2 (Version None)
Quarter: 2006Q1

REPORT INFORMATION
  Report Type: 
  Country: None (occurrence: None)
  Receive Date: 20060222
  Receipt Date: 20060206
  Transmission Date: 20060701
  Serious: Yes (Death, Other)
  Sender: FDA-Public Use
  Company Number: 2006BH002414

PATIENT
  Sex: 0

DRUGS (3)
  1. VINCRISTINE SULFATE [Suspect]
     Indication: AMYLOIDOSIS
     Dosage: ONCE; IV   1CYCLE
     Route: 042
  2. DEXAMETHASONE [Suspect]
     Indication: AMYLOIDOSIS
     Dosage: ONCE; IV  1 CYCLE
  3. ADRIAMYCIN PFS [Suspect]
     Indication: AMYLOIDOSIS
     Dosage: ONCE; IV    1 CYCLE

REACTIONS (3)
  - DRUG TOXICITY [None]
  - MULTI-ORGAN FAILURE [None]
  - NEUTROPENIC SEPSIS [None]
